FAERS Safety Report 15802921 (Version 1)
Quarter: 2018Q4

REPORT INFORMATION
  Report Type: Spontaneous
  Country: US (occurrence: US)
  Receive Date: 20181213
  Receipt Date: 20181213
  Transmission Date: 20190205
  Serious: No
  Sender: FDA-Public Use
  Company Number: None

PATIENT
  Age: 70 Year
  Sex: Female
  Weight: 67.13 kg

DRUGS (47)
  1. TETRACYCLINE [Suspect]
     Active Substance: TETRACYCLINE
  2. TORADOL [Suspect]
     Active Substance: KETOROLAC TROMETHAMINE
  3. SAVELLA [Suspect]
     Active Substance: MILNACIPRAN HYDROCHLORIDE
  4. LISINOPRIL. [Suspect]
     Active Substance: LISINOPRIL
  5. NORVASC [Suspect]
     Active Substance: AMLODIPINE BESYLATE
  6. LEVSIN [Suspect]
     Active Substance: HYOSCYAMINE SULFATE
  7. RESTORIL [Suspect]
     Active Substance: TEMAZEPAM
  8. SOMA [Suspect]
     Active Substance: CARISOPRODOL
  9. LORTAB [Suspect]
     Active Substance: ACETAMINOPHEN\HYDROCODONE BITARTRATE
  10. PAXIL [Suspect]
     Active Substance: PAROXETINE HYDROCHLORIDE
  11. PLAQUENIL [Suspect]
     Active Substance: HYDROXYCHLOROQUINE SULFATE
  12. ROCEPHIN [Suspect]
     Active Substance: CEFTRIAXONE SODIUM
  13. COREG [Suspect]
     Active Substance: CARVEDILOL
  14. NEURONTIN [Suspect]
     Active Substance: GABAPENTIN
  15. NORTRIPTYLINE [Suspect]
     Active Substance: NORTRIPTYLINE
  16. PREVACID [Suspect]
     Active Substance: LANSOPRAZOLE
  17. AUGMENTIN [Suspect]
     Active Substance: AMOXICILLIN\CLAVULANATE POTASSIUM
  18. MORPHINE [Suspect]
     Active Substance: MORPHINE
  19. FOSAMAX [Suspect]
     Active Substance: ALENDRONATE SODIUM
  20. FLAGYL [Suspect]
     Active Substance: METRONIDAZOLE\METRONIDAZOLE HYDROCHLORIDE
  21. GABITRIL [Suspect]
     Active Substance: TIAGABINE HYDROCHLORIDE
  22. PERCOCET [Suspect]
     Active Substance: ACETAMINOPHEN\OXYCODONE HYDROCHLORIDE
  23. DOXEPIN [Suspect]
     Active Substance: DOXEPIN
  24. TRAZODONE [Suspect]
     Active Substance: TRAZODONE HYDROCHLORIDE
  25. CEFZIL [Suspect]
     Active Substance: CEFPROZIL
  26. TOPROL XL [Suspect]
     Active Substance: METOPROLOL SUCCINATE
  27. RADIOLOGICAL IODINE (IV) [Suspect]
     Active Substance: IODINE
  28. PROVIGIL [Suspect]
     Active Substance: MODAFINIL
  29. TOPAMAX [Suspect]
     Active Substance: TOPIRAMATE
  30. CIPRO [Suspect]
     Active Substance: CIPROFLOXACIN HYDROCHLORIDE
  31. LORABID [Suspect]
     Active Substance: LORACARBEF
  32. LYRICA [Suspect]
     Active Substance: PREGABALIN
  33. TEGRETOL [Suspect]
     Active Substance: CARBAMAZEPINE
  34. AMBIEN [Suspect]
     Active Substance: ZOLPIDEM TARTRATE
  35. LEVAQUIN [Suspect]
     Active Substance: LEVOFLOXACIN
  36. PLETAL [Suspect]
     Active Substance: CILOSTAZOL
  37. CYMBALTA [Suspect]
     Active Substance: DULOXETINE HYDROCHLORIDE
  38. IMDUR [Suspect]
     Active Substance: ISOSORBIDE MONONITRATE
  39. CODEINE [Suspect]
     Active Substance: CODEINE
  40. PERCODAN [Suspect]
     Active Substance: ASPIRIN\OXYCODONE HYDROCHLORIDE
  41. ZOLOFT [Suspect]
     Active Substance: SERTRALINE HYDROCHLORIDE
  42. CLINDAMYCIN (2014) [Suspect]
     Active Substance: CLINDAMYCIN
  43. REMERON [Suspect]
     Active Substance: MIRTAZAPINE
  44. CHANTIX [Suspect]
     Active Substance: VARENICLINE TARTRATE
  45. NEXIUM [Suspect]
     Active Substance: ESOMEPRAZOLE MAGNESIUM
  46. MOTRIN [Suspect]
     Active Substance: IBUPROFEN
  47. FLOXIN [Suspect]
     Active Substance: OFLOXACIN

REACTIONS (29)
  - Hallucination [None]
  - Diplopia [None]
  - Vision blurred [None]
  - Pain in extremity [None]
  - Insomnia [None]
  - Disorientation [None]
  - Thinking abnormal [None]
  - Arthralgia [None]
  - Disturbance in attention [None]
  - Tremor [None]
  - Confusional state [None]
  - Headache [None]
  - Hypoaesthesia [None]
  - Nausea [None]
  - Vomiting [None]
  - Nightmare [None]
  - Palpitations [None]
  - Coordination abnormal [None]
  - Somnambulism [None]
  - Back pain [None]
  - Dysuria [None]
  - Constipation [None]
  - Psychomotor hyperactivity [None]
  - Diarrhoea [None]
  - Anaphylactic reaction [None]
  - Hypoaesthesia oral [None]
  - Nervousness [None]
  - Somnolence [None]
  - Generalised oedema [None]
